FAERS Safety Report 6401987-8 (Version None)
Quarter: 2009Q4

REPORT INFORMATION
  Report Type: 
  Country: None (occurrence: None)
  Receive Date: 20091015
  Receipt Date: 20091013
  Transmission Date: 20100525
  Serious: Yes (Hospitalization)
  Sender: FDA-Public Use
  Company Number: D0063010A

PATIENT
  Sex: Male
  Weight: 75 kg

DRUGS (6)
  1. REQUIP [Suspect]
     Dosage: .25MG THREE TIMES PER DAY
     Route: 048
     Dates: start: 20090905, end: 20090910
  2. MADOPAR [Concomitant]
     Dosage: 125MG FIVE TIMES PER DAY
     Route: 048
  3. METOHEXAL [Concomitant]
     Dosage: 50MG PER DAY
     Route: 048
  4. DIOVAN [Concomitant]
     Route: 065
  5. LASIX [Concomitant]
     Dosage: 20MG PER DAY
     Route: 048
  6. SIOFOR [Concomitant]
     Dosage: 850MG TWICE PER DAY
     Route: 048

REACTIONS (5)
  - CARDIAC FAILURE [None]
  - CARDIOMEGALY [None]
  - DISTURBANCE IN ATTENTION [None]
  - PNEUMONIA [None]
  - PULMONARY CONGESTION [None]
